FAERS Safety Report 6430183-3 (Version None)
Quarter: 2009Q4

REPORT INFORMATION
  Report Type: 
  Country: None (occurrence: None)
  Receive Date: 20091106
  Receipt Date: 20091103
  Transmission Date: 20100525
  Serious: Yes (Death)
  Sender: FDA-Public Use
  Company Number: PHEH2009US06239

PATIENT
  Sex: Female

DRUGS (2)
  1. FEMARA [Suspect]
     Indication: BREAST CANCER
     Dosage: 2.5 MG, QD
     Route: 048
     Dates: start: 20070701
  2. XANAX [Concomitant]
     Indication: ANXIETY
     Dosage: 0.5 MG, PRN

REACTIONS (2)
  - MYOCARDIAL INFARCTION [None]
  - PULMONARY EMBOLISM [None]
